FAERS Safety Report 16112167 (Version 1)
Quarter: 2019Q1

REPORT INFORMATION
  Report Type: Spontaneous
  Country: BE (occurrence: BE)
  Receive Date: 20190325
  Receipt Date: 20190325
  Transmission Date: 20190418
  Serious: Yes (Other)
  Sender: FDA-Public Use
  Company Number: BE-ABBVIE-18K-013-2457077-00

PATIENT
  Sex: Female
  Weight: 40 kg

DRUGS (2)
  1. VENCLYXTO [Suspect]
     Active Substance: VENETOCLAX
     Indication: PRODUCT USED FOR UNKNOWN INDICATION
     Route: 048
     Dates: start: 201804
  2. VENCLYXTO [Suspect]
     Active Substance: VENETOCLAX
     Route: 048

REACTIONS (5)
  - Lymphoma [Unknown]
  - Disease progression [Unknown]
  - Richter^s syndrome [Unknown]
  - Neutropenia [Recovered/Resolved]
  - Adverse event [Unknown]

NARRATIVE: CASE EVENT DATE: 201804
